FAERS Safety Report 11741312 (Version 1)
Quarter: 2015Q4

REPORT INFORMATION
  Report Type: Spontaneous
  Country: US (occurrence: US)
  Receive Date: 20151116
  Receipt Date: 20151116
  Transmission Date: 20160304
  Serious: No
  Sender: FDA-Public Use
  Company Number: US-ASTRAZENECA-2015SF07839

PATIENT
  Age: 1111 Month
  Sex: Female
  Weight: 63.5 kg

DRUGS (6)
  1. DALIRESP [Suspect]
     Active Substance: ROFLUMILAST
     Indication: CHRONIC OBSTRUCTIVE PULMONARY DISEASE
     Route: 048
     Dates: start: 20141222, end: 20141231
  2. DALIRESP [Suspect]
     Active Substance: ROFLUMILAST
     Indication: BRONCHITIS
     Route: 048
     Dates: start: 20141222, end: 20141231
  3. SPIRIVA [Concomitant]
     Active Substance: TIOTROPIUM BROMIDE MONOHYDRATE
     Indication: CHRONIC OBSTRUCTIVE PULMONARY DISEASE
     Route: 055
  4. DALIRESP [Suspect]
     Active Substance: ROFLUMILAST
     Indication: CHRONIC OBSTRUCTIVE PULMONARY DISEASE
     Route: 048
     Dates: start: 201504
  5. DALIRESP [Suspect]
     Active Substance: ROFLUMILAST
     Indication: BRONCHITIS
     Route: 048
     Dates: start: 201504
  6. MUCINEX [Concomitant]
     Active Substance: GUAIFENESIN
     Dosage: AS REQUIRED

REACTIONS (4)
  - Asthenia [Unknown]
  - Malaise [Unknown]
  - Balance disorder [Unknown]
  - Condition aggravated [Recovering/Resolving]

NARRATIVE: CASE EVENT DATE: 201510
